FAERS Safety Report 5987954-7 (Version None)
Quarter: 2008Q4

REPORT INFORMATION
  Report Type: 
  Country: None (occurrence: None)
  Receive Date: 20081210
  Receipt Date: 20080416
  Transmission Date: 20090506
  Serious: No
  Sender: FDA-Public Use
  Company Number: US-AMGEN-KDL274575

PATIENT
  Sex: Female
  Weight: 58.6 kg

DRUGS (9)
  1. ENBREL [Suspect]
     Indication: RHEUMATOID ARTHRITIS
     Route: 058
     Dates: start: 20080321
  2. METHOTREXATE [Concomitant]
     Dates: start: 20070701
  3. TOPAMAX [Concomitant]
  4. CELEBREX [Concomitant]
  5. PREDNISONE TAB [Concomitant]
  6. FOLIC ACID [Concomitant]
  7. LUNESTA [Concomitant]
  8. ATIVAN [Concomitant]
  9. AMITRIPTYLINE HCL [Concomitant]

REACTIONS (5)
  - ABDOMINAL PAIN [None]
  - INJECTION SITE ERYTHEMA [None]
  - INJECTION SITE PRURITUS [None]
  - INJECTION SITE REACTION [None]
  - MENORRHAGIA [None]
